FAERS Safety Report 4624991-9 (Version None)
Quarter: 2005Q2

REPORT INFORMATION
  Report Type: 
  Country: None (occurrence: None)
  Receive Date: 20050401
  Receipt Date: 20050321
  Transmission Date: 20051028
  Serious: Yes (Other)
  Sender: FDA-Public Use
  Company Number: US-JNJFOC-20050305745

PATIENT
  Age: 49 Year
  Sex: Female
  Weight: 62.6 kg

DRUGS (4)
  1. TOPAMAX [Suspect]
     Indication: MIGRAINE
     Route: 049
  2. ESTRACE [Concomitant]
     Indication: DRUG USE FOR UNKNOWN INDICATION
  3. ESTRADIOL [Concomitant]
     Indication: DRUG USE FOR UNKNOWN INDICATION
  4. DILANTIN [Concomitant]
     Indication: DRUG USE FOR UNKNOWN INDICATION

REACTIONS (2)
  - MYOCARDIAL INFARCTION [None]
  - PNEUMONIA [None]
